FAERS Safety Report 13181575 (Version 1)
Quarter: 2017Q1

REPORT INFORMATION
  Report Type: Spontaneous
  Country: DE (occurrence: DE)
  Receive Date: 20170202
  Receipt Date: 20170202
  Transmission Date: 20170428
  Serious: Yes (Other)
  Sender: FDA-Public Use
  Company Number: DE-BIOGEN-2017BI00351778

PATIENT
  Age: 34 Year
  Sex: Female
  Weight: 83 kg

DRUGS (1)
  1. TECFIDERA [Suspect]
     Active Substance: DIMETHYL FUMARATE
     Indication: MULTIPLE SCLEROSIS
     Route: 048
     Dates: start: 20130301

REACTIONS (3)
  - Alopecia areata [Unknown]
  - Alopecia universalis [Unknown]
  - Basedow^s disease [Unknown]

NARRATIVE: CASE EVENT DATE: 20160801
